FAERS Safety Report 18502269 (Version 3)
Quarter: 2023Q1

REPORT INFORMATION
  Report Type: Spontaneous
  Country: CA (occurrence: CA)
  Receive Date: 20201113
  Receipt Date: 20230216
  Transmission Date: 20230417
  Serious: No
  Sender: FDA-Public Use
  Company Number: CA-SAMSUNG BIOEPIS-SB-2020-34180

PATIENT
  Age: 24 Year
  Sex: Female
  Weight: 54 kg

DRUGS (4)
  1. INFLIXIMAB [Suspect]
     Active Substance: INFLIXIMAB
     Indication: Crohn^s disease
     Route: 042
  2. CEPHALEXIN [Concomitant]
     Active Substance: CEPHALEXIN
     Indication: Eczema
     Route: 048
  3. ERGOCALCIFEROL [Concomitant]
     Active Substance: ERGOCALCIFEROL
     Indication: Product used for unknown indication
     Dosage: UNKNOWN
     Route: 048
  4. PROBIOTICS NOS [Concomitant]
     Active Substance: PROBIOTICS NOS
     Indication: Product used for unknown indication
     Dosage: UNKNOWN
     Route: 065

REACTIONS (11)
  - Psoriasis [Recovered/Resolved]
  - Condition aggravated [Recovered/Resolved]
  - Rash [Recovered/Resolved]
  - Skin ulcer [Recovered/Resolved]
  - Dermatitis psoriasiform [Recovered/Resolved]
  - Staphylococcal skin infection [Recovered/Resolved]
  - Decreased appetite [Recovered/Resolved]
  - Heart rate decreased [Recovered/Resolved]
  - Drug ineffective [Recovered/Resolved]
  - Inappropriate schedule of product administration [Recovered/Resolved]
  - Off label use [Recovered/Resolved]
